FAERS Safety Report 5098087-9 (Version None)
Quarter: 2006Q3

REPORT INFORMATION
  Report Type: 
  Country: None (occurrence: None)
  Receive Date: 20060906
  Receipt Date: 20060407
  Transmission Date: 20061208
  Serious: No
  Sender: FDA-Public Use
  Company Number: US-GLAXOSMITHKLINE-A0600923A

PATIENT
  Age: 57 Year
  Sex: Male

DRUGS (9)
  1. REQUIP [Suspect]
     Indication: RESTLESS LEGS SYNDROME
     Dosage: 1MG PER DAY
     Route: 048
     Dates: start: 20060301
  2. NAPROXEN [Concomitant]
  3. TRAMADOL HCL [Concomitant]
  4. FOSINOPRIL SODIUM [Concomitant]
  5. TERAZOSIN HCL [Concomitant]
  6. ASPIRIN [Concomitant]
  7. MULTI-VITAMIN [Concomitant]
  8. CLONAZEPAM [Concomitant]
  9. APAP TAB [Concomitant]

REACTIONS (2)
  - HEART RATE INCREASED [None]
  - INSOMNIA [None]
